FAERS Safety Report 8842007 (Version 1)
Quarter: 2012Q4

REPORT INFORMATION
  Report Type: Spontaneous
  Country: US (occurrence: None)
  Receive Date: 20121015
  Receipt Date: 20121015
  Transmission Date: 20130627
  Serious: Yes (Other)
  Sender: FDA-Public Use
  Company Number: None

PATIENT
  Age: 29 Year
  Sex: Female
  Weight: 61.24 kg

DRUGS (4)
  1. CIPROFLOXACIN [Suspect]
     Indication: INFECTION
     Dates: start: 20120918, end: 20120925
  2. CIPROFLOXACIN [Suspect]
     Indication: ANTIBIOTIC THERAPY
     Dates: start: 20120918, end: 20120925
  3. NAPROXEN [Suspect]
     Indication: PAIN
     Dates: start: 20120918, end: 20120925
  4. MIRENA [Suspect]
     Dates: start: 20070619

REACTIONS (5)
  - Infection [None]
  - Migraine [None]
  - Dyspareunia [None]
  - Loss of consciousness [None]
  - Medical device complication [None]
